FAERS Safety Report 14655919 (Version 1)
Quarter: 2018Q1

REPORT INFORMATION
  Report Type: Report from Study
  Country: US (occurrence: US)
  Receive Date: 20180319
  Receipt Date: 20180319
  Transmission Date: 20180509
  Serious: No
  Sender: FDA-Public Use
  Company Number: US-TEVA-2018-US-871239

PATIENT
  Age: 34 Year
  Sex: Female

DRUGS (3)
  1. COPAXONE [Suspect]
     Active Substance: GLATIRAMER ACETATE
     Route: 058
     Dates: start: 20160130, end: 20170106
  2. COPAXONE [Suspect]
     Active Substance: GLATIRAMER ACETATE
     Indication: MULTIPLE SCLEROSIS
     Dosage: FORM STRENGTH : UNKNOWN
     Route: 058
     Dates: start: 20130928, end: 20150203
  3. COPAXONE [Suspect]
     Active Substance: GLATIRAMER ACETATE
     Route: 058
     Dates: start: 20170417

REACTIONS (3)
  - Injection site haematoma [Recovered/Resolved]
  - Injection site scar [Unknown]
  - Injection site pain [Unknown]

NARRATIVE: CASE EVENT DATE: 201711
